FAERS Safety Report 13076666 (Version 2)
Quarter: 2017Q2

REPORT INFORMATION
  Report Type: Spontaneous
  Country: US (occurrence: US)
  Receive Date: 20161230
  Receipt Date: 20170411
  Transmission Date: 20170830
  Serious: No
  Sender: FDA-Public Use
  Company Number: US-TEVA-716668USA

PATIENT
  Age: 47 Year
  Sex: Male
  Weight: 98.06 kg

DRUGS (1)
  1. SYNRIBO [Suspect]
     Active Substance: OMACETAXINE MEPESUCCINATE
     Indication: CHRONIC MYELOID LEUKAEMIA
     Dosage: HOME ADMINISTRATION
     Route: 065
     Dates: start: 20161118

REACTIONS (5)
  - Incorrect dose administered [Recovered/Resolved]
  - Injection site erythema [Unknown]
  - Drug dispensing error [Recovered/Resolved]
  - Injection site irritation [Unknown]
  - Injection site swelling [Unknown]

NARRATIVE: CASE EVENT DATE: 2016
